FAERS Safety Report 8532826-7 (Version None)
Quarter: 2012Q3

REPORT INFORMATION
  Report Type: 
  Country: None (occurrence: None)
  Receive Date: 20120711
  Receipt Date: 20120311
  Transmission Date: 20120928
  Serious: Yes (Hospitalization)
  Sender: FDA-Public Use
  Company Number: 2012-03012

PATIENT
  Age: 18 Year
  Sex: Male

DRUGS (2)
  1. IMOGAM RABIES-HT [Suspect]
     Indication: IMMUNISATION
     Dosage: 600  IV
     Route: 042
     Dates: start: 20120518
  2. TETANUS VACCINE [Suspect]
     Indication: IMMUNISATION

REACTIONS (3)
  - DYSPNOEA [None]
  - INCORRECT ROUTE OF DRUG ADMINISTRATION [None]
  - URTICARIA [None]
